FAERS Safety Report 9113420 (Version 1)
Quarter: 2013Q1

REPORT INFORMATION
  Report Type: Spontaneous
  Country: FR (occurrence: FR)
  Receive Date: 20130131
  Receipt Date: 20130131
  Transmission Date: 20140127
  Serious: Yes (Hospitalization, Other)
  Sender: FDA-Public Use
  Company Number: FR-PFIZER INC-2013029218

PATIENT
  Age: 9 Year
  Sex: Female

DRUGS (9)
  1. DALACINE [Suspect]
     Indication: ABSCESS
     Dosage: UNK
     Dates: start: 20121002, end: 20121024
  2. CODENFAN [Suspect]
     Indication: PAIN
     Dosage: UNK
     Route: 048
     Dates: start: 20120924, end: 20120925
  3. PERFALGAN [Suspect]
     Indication: PYREXIA
     Dosage: UNK
     Route: 042
     Dates: start: 20120924, end: 20120925
  4. COLCHICINE [Suspect]
     Indication: PERICARDITIS
     Dosage: UNK
     Route: 048
     Dates: start: 20121002, end: 20121024
  5. AUGMENTIN [Suspect]
     Indication: ABSCESS
     Dosage: UNK
     Dates: start: 20121002, end: 20121005
  6. AMIKLIN [Suspect]
     Indication: ABSCESS
     Dosage: UNK
     Dates: start: 20121002, end: 20121004
  7. BRISTOPEN [Suspect]
     Indication: ABSCESS
     Dosage: UNK
     Dates: start: 20121005, end: 20121011
  8. ORBENINE [Suspect]
     Indication: ABSCESS
     Dosage: UNK
     Dates: start: 20121011, end: 20121024
  9. RIFADINE [Suspect]
     Indication: ABSCESS
     Dosage: UNK
     Dates: start: 20121025, end: 20121029

REACTIONS (1)
  - Drug reaction with eosinophilia and systemic symptoms [Recovered/Resolved]
